FAERS Safety Report 6195750-3 (Version None)
Quarter: 2009Q2

REPORT INFORMATION
  Report Type: 
  Country: None (occurrence: None)
  Receive Date: 20090520
  Receipt Date: 20070911
  Transmission Date: 20091009
  Serious: Yes (Hospitalization, Other)
  Sender: FDA-Public Use
  Company Number: US-ASTRAZENECA-2006UW20466

PATIENT
  Age: 13677 Day
  Sex: Female
  Weight: 82.5 kg

DRUGS (25)
  1. SEROQUEL [Suspect]
     Indication: BIPOLAR DISORDER
     Route: 048
     Dates: start: 19980101, end: 20000101
  2. SEROQUEL [Suspect]
     Indication: DEPRESSION
     Route: 048
     Dates: start: 19980101, end: 20000101
  3. SEROQUEL [Suspect]
     Indication: ANXIETY
     Route: 048
     Dates: start: 19980101, end: 20000101
  4. SEROQUEL [Suspect]
     Route: 048
     Dates: start: 19991213
  5. SEROQUEL [Suspect]
     Route: 048
     Dates: start: 19991213
  6. SEROQUEL [Suspect]
     Route: 048
     Dates: start: 19991213
  7. RISPERDAL [Concomitant]
     Route: 065
  8. ZYPREXA/SYMBYAX (OLANZAPINE) [Concomitant]
     Route: 065
  9. GLUCAGON [Concomitant]
     Route: 058
  10. GLUCOSE TABLET [Concomitant]
     Route: 048
  11. SODIUM CHLORIDE [Concomitant]
     Route: 065
  12. ASPIRIN [Concomitant]
     Route: 065
  13. CLOPIDOGREL [Concomitant]
     Route: 048
  14. DILTIAZEM HCL [Concomitant]
     Dosage: 240 MG Q.AM, BID
     Route: 048
  15. ESTRADIOL [Concomitant]
     Dosage: 1 TO 2 MG QD
     Route: 048
  16. FEXOFENADINE HCL [Concomitant]
     Route: 048
  17. FLUOXETINE HCL [Concomitant]
     Route: 048
  18. INSULIN HUMAN REQULAR [Concomitant]
     Dosage: 100
     Route: 065
  19. METFORMIN HCL [Concomitant]
     Route: 048
  20. PROPOXYPHENE NAPSYLATE [Concomitant]
     Route: 048
  21. HYDROCHLOROTHIAZIDE [Concomitant]
     Dosage: 12.5 TO 25 MG  QD
     Route: 065
  22. CLONIDINE [Concomitant]
     Indication: HYPERTENSION
     Dosage: 01 TO 1 MG
     Route: 048
  23. TYLENOL [Concomitant]
     Dosage: 1 DAILY
     Route: 065
  24. TRAZODONE HCL [Concomitant]
     Indication: SLEEP DISORDER
     Dosage: 500 TO 1000 MG HS
     Route: 065
  25. NASACORT [Concomitant]
     Dosage: QD
     Route: 045

REACTIONS (34)
  - ABDOMINAL PAIN [None]
  - ALCOHOL ABUSE [None]
  - ARTERIOSCLEROSIS [None]
  - ASTHENIA [None]
  - BIPOLAR DISORDER [None]
  - BORDERLINE PERSONALITY DISORDER [None]
  - CEREBROVASCULAR ACCIDENT [None]
  - CHEST PAIN [None]
  - CHOLECYSTITIS [None]
  - DEPENDENT PERSONALITY DISORDER [None]
  - DERMATITIS CONTACT [None]
  - DROOLING [None]
  - DYSFUNCTIONAL UTERINE BLEEDING [None]
  - DYSMENORRHOEA [None]
  - EAR PAIN [None]
  - HEADACHE [None]
  - HYPOAESTHESIA [None]
  - MAJOR DEPRESSION [None]
  - MENORRHAGIA [None]
  - MUSCLE SPASMS [None]
  - OBESITY [None]
  - OROPHARYNGEAL PAIN [None]
  - PARAESTHESIA [None]
  - PELVIC PAIN [None]
  - PHARYNGEAL OEDEMA [None]
  - PICA [None]
  - PSYCHOTIC DISORDER [None]
  - RASH PRURITIC [None]
  - RHINITIS ALLERGIC [None]
  - SPEECH DISORDER [None]
  - TRANSIENT ISCHAEMIC ATTACK [None]
  - TYPE 2 DIABETES MELLITUS [None]
  - UTERINE LEIOMYOMA [None]
  - UTERINE POLYP [None]
